FAERS Safety Report 8429188-2 (Version None)
Quarter: 2012Q2

REPORT INFORMATION
  Report Type: 
  Country: None (occurrence: None)
  Receive Date: 20120612
  Receipt Date: 20120604
  Transmission Date: 20120825
  Serious: Yes (Other)
  Sender: FDA-Public Use
  Company Number: PHHY2012CA049666

PATIENT
  Sex: Female

DRUGS (2)
  1. METOPROLOL TARTRATE [Suspect]
  2. LOPRESSOR [Suspect]
     Dosage: 50 MG

REACTIONS (2)
  - SYNCOPE [None]
  - FATIGUE [None]
